FAERS Safety Report 8444802-3 (Version None)
Quarter: 2012Q2

REPORT INFORMATION
  Report Type: 
  Country: None (occurrence: None)
  Receive Date: 20120618
  Receipt Date: 20120611
  Transmission Date: 20120825
  Serious: Yes (Hospitalization)
  Sender: FDA-Public Use
  Company Number: PHHY2012FR051021

PATIENT
  Sex: Female

DRUGS (8)
  1. METFORMIN HCL [Concomitant]
     Indication: TYPE 2 DIABETES MELLITUS
     Dosage: 500 MG, UNK
  2. JANUVIA [Suspect]
     Indication: TYPE 2 DIABETES MELLITUS
     Dosage: 100 MG, QD
     Route: 048
     Dates: end: 20120318
  3. NICARDIPINE HYDROCHLORIDE [Concomitant]
     Route: 048
  4. BROMAZEPAM [Concomitant]
  5. RASILEZ HCT [Suspect]
     Route: 048
  6. MEDIATENSYL [Concomitant]
     Dosage: 30 MG, UNK
     Route: 048
  7. EZETIMIBE [Suspect]
     Dosage: 10/20 MG
     Route: 048
  8. TRIPHASIL-21 [Suspect]
     Route: 048

REACTIONS (4)
  - HEPATIC LESION [None]
  - HYPERTRIGLYCERIDAEMIA [None]
  - HEPATIC NECROSIS [None]
  - PANCREATITIS ACUTE [None]
